FAERS Safety Report 16609372 (Version 1)
Quarter: 2019Q3

REPORT INFORMATION
  Report Type: Spontaneous
  Country: US (occurrence: US)
  Receive Date: 20190720
  Receipt Date: 20190720
  Transmission Date: 20191004
  Serious: Yes (Life-Threatening)
  Sender: FDA-Public Use
  Company Number: None

PATIENT
  Age: 29 Year
  Sex: Female
  Weight: 65.25 kg

DRUGS (4)
  1. PROAIR RESPICLICK [Suspect]
     Active Substance: ALBUTEROL SULFATE
     Indication: ASTHMA
     Dosage: ?          QUANTITY:2 INHALATION(S);?
     Route: 055
     Dates: start: 20190515
  2. EPIPEN [Concomitant]
     Active Substance: EPINEPHRINE
  3. CLARITIN [Concomitant]
     Active Substance: LORATADINE
  4. ISOBLOOM [Concomitant]

REACTIONS (3)
  - Device malfunction [None]
  - Insurance issue [None]
  - Dyspnoea [None]

NARRATIVE: CASE EVENT DATE: 20190720
